FAERS Safety Report 23723100 (Version 10)
Quarter: 2024Q4

REPORT INFORMATION
  Report Type: Spontaneous
  Country: FR (occurrence: FR)
  Receive Date: 20240409
  Receipt Date: 20241001
  Transmission Date: 20250115
  Serious: Yes (Death, Hospitalization, Other)
  Sender: SANDOZ
  Company Number: FR-ELERTE-202400010

PATIENT
  Age: 34 Year
  Sex: Male
  Weight: 79 kg

DRUGS (45)
  1. CODEINE PHOSPHATE\IBUPROFEN [Suspect]
     Active Substance: CODEINE PHOSPHATE\IBUPROFEN
     Indication: Back pain
     Dosage: 1 DF THERAPY START DATE: //2016 THERAPY END DATE: //2016
     Route: 048
     Dates: start: 2016, end: 2016
  2. ARTANE [Suspect]
     Active Substance: TRIHEXYPHENIDYL HYDROCHLORIDE
     Indication: Product used for unknown indication
     Dosage: UNK, STRENGTH 5MG
     Route: 065
  3. CLOTIAZEPAM [Suspect]
     Active Substance: CLOTIAZEPAM
     Indication: Product used for unknown indication
     Route: 065
  4. THIOCOLCHICOSIDE [Suspect]
     Active Substance: THIOCOLCHICOSIDE
     Indication: Product used for unknown indication
     Dosage: UNK
     Route: 065
  5. TRAMADOL HYDROCHLORIDE [Suspect]
     Active Substance: TRAMADOL HYDROCHLORIDE
     Indication: Back pain
     Route: 065
  6. PAROXETINE MESYLATE [Suspect]
     Active Substance: PAROXETINE MESYLATE
     Indication: Back pain
     Dosage: PAROXETINE 20 MG/UNK THERAPY START DATE: //2016 THERAPY END DATE: //2016
     Route: 065
     Dates: start: 2016, end: 2016
  7. FENTANYL [Suspect]
     Active Substance: FENTANYL
     Indication: Back pain
     Dosage: UNK THERAPY START DATE: //2016 THERAPY END DATE: //2016/DUROGESIC, STRENGTH 12 ?G
     Route: 062
     Dates: start: 2016, end: 2016
  8. IBUPROFEN [Suspect]
     Active Substance: IBUPROFEN
     Indication: Back pain
     Dosage: 1 DF
     Route: 048
     Dates: start: 2016, end: 2016
  9. KETAMINE [Suspect]
     Active Substance: KETAMINE
     Indication: Back pain
     Dosage: UNK, THERAPY START DATE: //2016 THERAPY END DATE: //2016UNK
     Route: 065
     Dates: start: 2016, end: 2016
  10. PRAZEPAM [Suspect]
     Active Substance: PRAZEPAM
     Indication: Product used for unknown indication
     Dosage: UNK, STRENGTH 10MG
     Route: 065
  11. MIANSERIN HYDROCHLORIDE [Suspect]
     Active Substance: MIANSERIN HYDROCHLORIDE
     Indication: Back pain
     Dosage: UNK
     Route: 065
     Dates: start: 2016, end: 2016
  12. NIFUROXAZIDE [Suspect]
     Active Substance: NIFUROXAZIDE
     Indication: Depression
     Route: 065
  13. OXYCONTIN [Suspect]
     Active Substance: OXYCODONE HYDROCHLORIDE
     Indication: Product used for unknown indication
     Dosage: UNK
     Route: 065
  14. PAROXETINE HYDROCHLORIDE [Suspect]
     Active Substance: PAROXETINE HYDROCHLORIDE
     Indication: Back pain
     Dosage: PAROXETINE 20 MG/UNK THERAPY START DATE: //2016 THERAPY END DATE: //2016
     Route: 048
     Dates: start: 20160829, end: 2016
  15. PAROXETINE HYDROCHLORIDE [Suspect]
     Active Substance: PAROXETINE HYDROCHLORIDE
     Dosage: PAROXETINE 20 MG/UNK THERAPY START DATE: //2016 THERAPY END DATE: //2016
     Route: 065
     Dates: start: 20160829, end: 2016
  16. PAROXETINE HYDROCHLORIDE [Suspect]
     Active Substance: PAROXETINE HYDROCHLORIDE
     Dosage: PAROXETINE 20 MG/UNK THERAPY START DATE: //2016 THERAPY END DATE: //2016
     Route: 065
     Dates: start: 20160829, end: 2016
  17. PAROXETINE HYDROCHLORIDE [Suspect]
     Active Substance: PAROXETINE HYDROCHLORIDE
     Indication: Back pain
     Dosage: PAROXETINE 20 MG/UNK THERAPY START DATE: //2016 THERAPY END DATE: //2016
     Route: 065
     Dates: start: 2016, end: 2016
  18. PAROXETINE HYDROCHLORIDE [Suspect]
     Active Substance: PAROXETINE HYDROCHLORIDE
     Dosage: PAROXETINE 20 MG/UNK THERAPY START DATE: //2016 THERAPY END DATE: //2016
     Route: 065
     Dates: start: 2016, end: 2016
  19. PAROXETINE HYDROCHLORIDE [Suspect]
     Active Substance: PAROXETINE HYDROCHLORIDE
     Dosage: PAROXETINE 20 MG/UNK THERAPY START DATE: //2016 THERAPY END DATE: //2016
     Route: 065
     Dates: start: 2016, end: 2016
  20. PAROXETINE HYDROCHLORIDE [Suspect]
     Active Substance: PAROXETINE HYDROCHLORIDE
     Dosage: PAROXETINE 20 MG/UNK THERAPY START DATE: //2016 THERAPY END DATE: //2016
     Route: 065
     Dates: start: 2016, end: 2016
  21. PAROXETINE HYDROCHLORIDE [Suspect]
     Active Substance: PAROXETINE HYDROCHLORIDE
     Dosage: PAROXETINE 20 MG/UNK THERAPY START DATE: //2016 THERAPY END DATE: //2016
     Route: 065
     Dates: start: 2016, end: 2016
  22. PAROXETINE HYDROCHLORIDE [Suspect]
     Active Substance: PAROXETINE HYDROCHLORIDE
     Dosage: PAROXETINE 20 MG/UNK THERAPY START DATE: //2016 THERAPY END DATE: //2016
     Route: 065
     Dates: start: 2016, end: 2016
  23. SKENAN [Suspect]
     Active Substance: MORPHINE SULFATE
     Indication: Back pain
     Dosage: 1 DF, QD, STRENGTH 10MG
     Route: 065
     Dates: start: 2016, end: 2016
  24. SKENAN [Suspect]
     Active Substance: MORPHINE SULFATE
     Dosage: UNK, 30 MG
     Route: 065
  25. ETIFOXINE [Suspect]
     Active Substance: ETIFOXINE
     Indication: Product used for unknown indication
     Dosage: UNK, STRENGTH 20MG
     Route: 065
  26. TRAMADOL [Suspect]
     Active Substance: TRAMADOL
     Indication: Back pain
     Dosage: UNK THERAPY START DATE: //2016 THERAPY END DATE: //2016UNK
     Route: 065
     Dates: start: 2016, end: 2016
  27. CLOBAZAM [Suspect]
     Active Substance: CLOBAZAM
     Indication: Product used for unknown indication
     Dosage: UNK, STRENGTH 10MG
     Route: 065
  28. VALIUM [Suspect]
     Active Substance: DIAZEPAM
     Indication: Product used for unknown indication
     Dosage: UNK, STRENGTH 10MG
     Route: 065
  29. QUETIAPINE FUMARATE [Suspect]
     Active Substance: QUETIAPINE FUMARATE
     Indication: Product used for unknown indication
     Dosage: UNK, STRENGTH 500MG
     Route: 065
  30. ALPRAZOLAM [Concomitant]
     Active Substance: ALPRAZOLAM
     Indication: Depression
     Dosage: UNK
     Route: 048
  31. ALPRAZOLAM [Concomitant]
     Active Substance: ALPRAZOLAM
     Indication: Psychiatric symptom
  32. OXAZEPAM [Concomitant]
     Active Substance: OXAZEPAM
     Indication: Product used for unknown indication
     Route: 065
  33. AMISULPRIDE [Concomitant]
     Active Substance: AMISULPRIDE
     Indication: Depression
     Route: 065
  34. ZOPICLONE [Concomitant]
     Active Substance: ZOPICLONE
     Indication: Psychiatric symptom
     Dosage: UNK
     Route: 048
  35. ZOPICLONE [Concomitant]
     Active Substance: ZOPICLONE
     Indication: Depression
     Dosage: UNK
     Route: 065
  36. CLONAZEPAM [Interacting]
     Active Substance: CLONAZEPAM
     Indication: Product used for unknown indication
     Dosage: UNK
     Route: 065
  37. COCAINE [Interacting]
     Active Substance: COCAINE
     Indication: Product used for unknown indication
     Dosage: UNK
     Route: 065
  38. MEPHENESIN [Interacting]
     Active Substance: MEPHENESIN
     Indication: Product used for unknown indication
     Dosage: UNK
     Route: 065
  39. NAFRONYL [Interacting]
     Active Substance: NAFRONYL
     Indication: Product used for unknown indication
     Dosage: UNK
     Route: 065
  40. NORDAZEPAM [Interacting]
     Active Substance: NORDAZEPAM
     Indication: Product used for unknown indication
     Dosage: UNK
     Route: 065
  41. OXAZEPAM [Interacting]
     Active Substance: OXAZEPAM
     Indication: Product used for unknown indication
     Dosage: UNK
     Route: 065
  42. ACETAMINOPHEN [Interacting]
     Active Substance: ACETAMINOPHEN
     Indication: Back pain
     Dosage: UNK
     Route: 065
     Dates: start: 2016, end: 2016
  43. ACETAMINOPHEN\CODEINE PHOSPHATE [Interacting]
     Active Substance: ACETAMINOPHEN\CODEINE PHOSPHATE
     Indication: Product used for unknown indication
     Dosage: UNK
     Route: 065
  44. QUETIAPINE [Interacting]
     Active Substance: QUETIAPINE
     Indication: Product used for unknown indication
     Dosage: 300 MILLIGRAM, 1/DAY
     Route: 065
  45. TEMAZEPAM [Interacting]
     Active Substance: TEMAZEPAM
     Indication: Product used for unknown indication
     Dosage: UNK
     Route: 065

REACTIONS (52)
  - Pulmonary oedema [Fatal]
  - Coma [Fatal]
  - Myocardial infarction [Fatal]
  - Cardiomyopathy [Fatal]
  - Myocarditis [Fatal]
  - Respiratory depression [Fatal]
  - Somnolence [Fatal]
  - Hepatitis acute [Fatal]
  - Encephalopathy [Fatal]
  - Accidental poisoning [Fatal]
  - Hepatic cytolysis [Fatal]
  - Overdose [Fatal]
  - Drug screen false positive [Fatal]
  - Jaundice [Fatal]
  - Confusional state [Fatal]
  - Cholecystitis infective [Fatal]
  - Toxicity to various agents [Fatal]
  - Acute pulmonary oedema [Fatal]
  - Hyperglycaemia [Fatal]
  - Ketosis [Fatal]
  - Hepatic enzyme increased [Fatal]
  - Necrosis [Fatal]
  - Coronary artery stenosis [Fatal]
  - White blood cell count increased [Fatal]
  - Labelled drug-drug interaction issue [Fatal]
  - Pancreas infection [Fatal]
  - Cardio-respiratory arrest [Fatal]
  - Intentional self-injury [Fatal]
  - Gallbladder injury [Fatal]
  - Coronary artery stenosis [Fatal]
  - Aspiration [Fatal]
  - Coronary artery stenosis [Fatal]
  - Respiratory depression [Fatal]
  - Stenosis [Fatal]
  - Drug abuse [Fatal]
  - Arrhythmia [Unknown]
  - Hypotension [Unknown]
  - Synovitis [Unknown]
  - Product prescribing issue [Unknown]
  - Hepatic failure [Unknown]
  - Hepatobiliary disease [Unknown]
  - Cardiac disorder [Unknown]
  - Inflammation [Unknown]
  - Hypersomnia [Unknown]
  - Leukocytosis [Unknown]
  - Monocytosis [Unknown]
  - Asteatosis [Unknown]
  - Aggression [Unknown]
  - Thirst [Unknown]
  - Logorrhoea [Unknown]
  - Panic attack [Unknown]
  - Confusional state [Unknown]

NARRATIVE: CASE EVENT DATE: 20160101
